FAERS Safety Report 5320786-1 (Version None)
Quarter: 2007Q2

REPORT INFORMATION
  Report Type: 
  Country: None (occurrence: None)
  Receive Date: 20070509
  Receipt Date: 20070501
  Transmission Date: 20071010
  Serious: Yes (Death)
  Sender: FDA-Public Use
  Company Number: US-ABBOTT-07P-163-0366901-00

PATIENT
  Sex: Male
  Weight: 45.4 kg

DRUGS (1)
  1. NORVIR [Suspect]
     Indication: ACQUIRED IMMUNODEFICIENCY SYNDROME
     Route: 048
     Dates: start: 20070301

REACTIONS (1)
  - ACQUIRED IMMUNODEFICIENCY SYNDROME [None]
